FAERS Safety Report 9474171 (Version 1)
Quarter: 2013Q3

REPORT INFORMATION
  Report Type: Report from Study
  Country: US (occurrence: US)
  Receive Date: 20130823
  Receipt Date: 20130823
  Transmission Date: 20140515
  Serious: Yes (Other)
  Sender: FDA-Public Use
  Company Number: US-ASTRAZENECA-2013SE63326

PATIENT
  Age: 37 Year
  Sex: Male

DRUGS (1)
  1. PROPOFOL [Suspect]
     Route: 042

REACTIONS (3)
  - Road traffic accident [Unknown]
  - Drug dependence [Unknown]
  - Confusional state [Unknown]
